FAERS Safety Report 21653197 (Version 1)
Quarter: 2022Q4

REPORT INFORMATION
  Report Type: Spontaneous
  Country: US (occurrence: US)
  Receive Date: 20221128
  Receipt Date: 20221128
  Transmission Date: 20230113
  Serious: Yes (Life-Threatening, Hospitalization, Other)
  Sender: FDA-Public Use
  Company Number: US-CELLTRION INC.-2022US019818

PATIENT

DRUGS (1)
  1. RITUXIMAB [Suspect]
     Active Substance: RITUXIMAB
     Indication: Rheumatoid arthritis
     Dosage: LAST DOSE OF RITUXIMAB EIGHT WEEKS PRIOR TO PRESENTATION

REACTIONS (3)
  - West Nile viral infection [Unknown]
  - West Nile virus test negative [Unknown]
  - False negative investigation result [Unknown]
